FAERS Safety Report 15318328 (Version 1)
Quarter: 2018Q3

REPORT INFORMATION
  Report Type: Spontaneous
  Country: US (occurrence: US)
  Receive Date: 20180825
  Receipt Date: 20180825
  Transmission Date: 20181010
  Serious: No
  Sender: FDA-Public Use
  Company Number: US-ELI_LILLY_AND_COMPANY-US201808007906

PATIENT
  Age: 84 Year
  Sex: Male

DRUGS (4)
  1. HUMALOG [Suspect]
     Active Substance: INSULIN LISPRO
     Indication: TYPE 2 DIABETES MELLITUS
     Dosage: 35 U, EACH MORNING (APPROX. AT SLIDING SCALE)
     Route: 058
     Dates: start: 20180805
  2. HUMALOG [Suspect]
     Active Substance: INSULIN LISPRO
     Dosage: 50?55 U, EACH EVENING (APPROX. AT SLIDING SCALE)
     Route: 058
     Dates: start: 20180805
  3. HUMALOG [Suspect]
     Active Substance: INSULIN LISPRO
     Dosage: 40 U, DAILY (APPROX. AT SLIDING SCALE)
     Route: 058
     Dates: start: 20180805
  4. LANTUS [Concomitant]
     Active Substance: INSULIN GLARGINE
     Indication: TYPE 2 DIABETES MELLITUS

REACTIONS (2)
  - Blood glucose increased [Recovering/Resolving]
  - Drug dose omission [Unknown]

NARRATIVE: CASE EVENT DATE: 20180815
